FAERS Safety Report 6404089-X (Version None)
Quarter: 2009Q4

REPORT INFORMATION
  Report Type: 
  Country: None (occurrence: None)
  Receive Date: 20091016
  Receipt Date: 20091006
  Transmission Date: 20100525
  Serious: Yes (Other)
  Sender: FDA-Public Use
  Company Number: US-PFIZER INC-2009279669

PATIENT
  Sex: Female
  Weight: 46.712 kg

DRUGS (7)
  1. LYRICA [Suspect]
     Indication: NEURALGIA
     Dosage: 75 MG, 2X/DAY
     Route: 048
     Dates: start: 20091005
  2. LYRICA [Interacting]
     Indication: PAIN IN EXTREMITY
     Dosage: UNK
     Dates: start: 20090101
  3. LYRICA [Interacting]
     Indication: MUSCLE SPASMS
  4. AMBIEN [Interacting]
     Dosage: 12.5 MG, UNK
     Route: 048
  5. THYROID TAB [Concomitant]
     Dosage: 45 MG, UNK
     Route: 048
  6. ULTRAM ER [Concomitant]
     Indication: PAIN
     Dosage: 200 MG, UNK
     Route: 048
  7. TIZANIDINE HCL [Concomitant]
     Indication: MUSCLE RELAXANT THERAPY
     Dosage: 4 MG, UNK
     Route: 048

REACTIONS (5)
  - DECREASED APPETITE [None]
  - DIZZINESS [None]
  - DRUG INTERACTION [None]
  - FEELING DRUNK [None]
  - HYPERTENSION [None]
